FAERS Safety Report 16323276 (Version 1)
Quarter: 2019Q2

REPORT INFORMATION
  Report Type: Other
  Country: SE (occurrence: SE)
  Receive Date: 20190517
  Receipt Date: 20190517
  Transmission Date: 20190711
  Serious: Yes (Death, Hospitalization)
  Sender: FDA-Public Use
  Company Number: SE-CELLTRION INC.-2019SE021144

PATIENT

DRUGS (2)
  1. REMSIMA [Suspect]
     Active Substance: INFLIXIMAB
     Indication: RHEUMATOID ARTHRITIS
     Dosage: 300 MG
     Dates: start: 20180816, end: 20190211
  2. METHOTREXATE. [Suspect]
     Active Substance: METHOTREXATE
     Indication: RHEUMATOID ARTHRITIS
     Dosage: UNK
     Dates: start: 20180504, end: 20190211

REACTIONS (2)
  - Diverticular perforation [Fatal]
  - Pneumonia [Fatal]

NARRATIVE: CASE EVENT DATE: 20181227
